FAERS Safety Report 11081548 (Version 1)
Quarter: 2015Q2

REPORT INFORMATION
  Report Type: Spontaneous
  Country: US (occurrence: US)
  Receive Date: 20150501
  Receipt Date: 20150501
  Transmission Date: 20150821
  Serious: No
  Sender: FDA-Public Use
  Company Number: US-ABBVIE-15P-163-1371598-00

PATIENT
  Age: 81 Year
  Sex: Female
  Weight: 61.29 kg

DRUGS (2)
  1. ESSENTIAL ENZYMES [Concomitant]
     Indication: ENZYME SUPPLEMENTATION
  2. CREON [Suspect]
     Active Substance: PANCRELIPASE AMYLASE\PANCRELIPASE LIPASE\PANCRELIPASE PROTEASE
     Indication: PANCREATITIS
     Route: 065
     Dates: start: 20150304

REACTIONS (2)
  - Urine odour abnormal [Not Recovered/Not Resolved]
  - Abdominal pain upper [Not Recovered/Not Resolved]

NARRATIVE: CASE EVENT DATE: 201503
